FAERS Safety Report 10248160 (Version 10)
Quarter: 2016Q4

REPORT INFORMATION
  Report Type: Report from Study
  Country: TH (occurrence: TH)
  Receive Date: 20140619
  Receipt Date: 20161220
  Transmission Date: 20170206
  Serious: Yes (Life-Threatening, Hospitalization)
  Sender: FDA-Public Use
  Company Number: TH-ROCHE-1013895

PATIENT
  Age: 63 Year
  Sex: Female

DRUGS (21)
  1. SODA MINT [Concomitant]
     Indication: PROPHYLAXIS
     Route: 065
     Dates: start: 20111028, end: 20111103
  2. MAGNESIUM SULPHATE [Concomitant]
     Active Substance: MAGNESIUM SULFATE
     Indication: HYPOMAGNESAEMIA
     Route: 065
     Dates: start: 20111112, end: 20111114
  3. CHOLESTYRAMINE. [Concomitant]
     Active Substance: CHOLESTYRAMINE
     Route: 065
     Dates: start: 20111117, end: 20111119
  4. PREDNISOLONE. [Suspect]
     Active Substance: PREDNISOLONE
     Indication: DIFFUSE LARGE B-CELL LYMPHOMA
     Dosage: DATE OF LAST DOSE PRIOR TO SAE: 28/OCT/2011.
     Route: 048
     Dates: start: 20111028
  5. CYPROHEPTADIN [Concomitant]
     Route: 065
     Dates: start: 20111014, end: 20111222
  6. CYCLOPHOSPHAMIDE. [Suspect]
     Active Substance: CYCLOPHOSPHAMIDE
     Indication: DIFFUSE LARGE B-CELL LYMPHOMA
     Dosage: DAT OF LAST DOSE PRIOR TO SAE: 28/OCT/2011.
     Route: 042
     Dates: start: 20111028
  7. VITAMIN B COMPLEX [Concomitant]
     Active Substance: CYANOCOBALAMIN\DEXPANTHENOL\NIACINAMIDE\PYRIDOXINE HYDROCHLORIDE\RIBOFLAVIN 5^-PHOSPHATE SODIUM\THIAMINE HYDROCHLORIDE\VITAMIN B COMPLEX
     Route: 065
     Dates: start: 20111014, end: 20111222
  8. LORAZEPAM. [Concomitant]
     Active Substance: LORAZEPAM
     Indication: ANXIETY
     Route: 065
     Dates: start: 20111014, end: 20111222
  9. DEXAMETHASONE. [Concomitant]
     Active Substance: DEXAMETHASONE
     Indication: PREMEDICATION
     Route: 065
     Dates: start: 20111028, end: 20111028
  10. PARACETAMOL [Concomitant]
     Active Substance: ACETAMINOPHEN
     Indication: PREMEDICATION
     Route: 065
     Dates: start: 20111028, end: 20111028
  11. OBINUTUZUMAB [Suspect]
     Active Substance: OBINUTUZUMAB
     Indication: DIFFUSE LARGE B-CELL LYMPHOMA
     Dosage: LAST DOSE CONCENTRATION WAS 4 MG/ML PRIOR TO SAE 28/OCT/2011
     Route: 042
     Dates: start: 20111028
  12. DOXORUBICIN [Suspect]
     Active Substance: DOXORUBICIN
     Indication: DIFFUSE LARGE B-CELL LYMPHOMA
     Dosage: DATE OF LAST DOSE PRIOR TO SAE: 28/OCT/2011.
     Route: 042
     Dates: start: 20111028
  13. VINCRISTINE [Suspect]
     Active Substance: VINCRISTINE
     Indication: DIFFUSE LARGE B-CELL LYMPHOMA
     Dosage: DATE OF LAST DOSE PRIOR TO SAE: 28/OCT/2011.
     Route: 040
     Dates: start: 20111028
  14. ZINC ACETATE [Concomitant]
     Active Substance: ZINC ACETATE
     Indication: ZINC DEFICIENCY
     Route: 065
     Dates: start: 20111111, end: 20111222
  15. ZINC ACETATE [Concomitant]
     Active Substance: ZINC ACETATE
     Indication: MALNUTRITION
  16. PIRITON [Concomitant]
     Active Substance: CHLORPHENIRAMINE MALEATE
     Indication: PREMEDICATION
     Route: 065
     Dates: start: 20111028, end: 20111028
  17. OMEPRAZOLE. [Concomitant]
     Active Substance: OMEPRAZOLE
     Route: 065
     Dates: start: 20111030, end: 20111126
  18. MOTILIUM [Concomitant]
     Active Substance: DOMPERIDONE
     Indication: FLATULENCE
     Route: 065
     Dates: end: 20111028
  19. ONSIA [Concomitant]
     Indication: PREMEDICATION
     Route: 065
     Dates: start: 20111028, end: 20111028
  20. FOLIC ACID. [Concomitant]
     Active Substance: FOLIC ACID
     Indication: NUTRITIONAL SUPPLEMENTATION
     Route: 065
     Dates: start: 20111114, end: 20111222
  21. DEXTROSE/SODIUM CHLORIDE [Concomitant]
     Dosage: 5% NORMAL SALINE.
     Route: 065
     Dates: start: 20111028, end: 20111101

REACTIONS (4)
  - Febrile neutropenia [Recovered/Resolved]
  - Septic shock [Recovered/Resolved]
  - Thrombocytopenia [Recovered/Resolved]
  - Tumour lysis syndrome [Recovered/Resolved]

NARRATIVE: CASE EVENT DATE: 20111028
